FAERS Safety Report 18382251 (Version 1)
Quarter: 2020Q4

REPORT INFORMATION
  Report Type: Spontaneous
  Country: US (occurrence: US)
  Receive Date: 20201014
  Receipt Date: 20201014
  Transmission Date: 20210114
  Serious: Yes (Death, Other)
  Sender: FDA-Public Use
  Company Number: US-AMGEN-USASP2020163952

PATIENT
  Sex: Male

DRUGS (7)
  1. LUCENTIS [Concomitant]
     Active Substance: RANIBIZUMAB
     Dosage: 0.5MG/0.5ML
  2. REPATHA [Suspect]
     Active Substance: EVOLOCUMAB
     Indication: PULMONARY FIBROSIS
     Dosage: 140 MILLIGRAM, Q2WK
     Route: 058
  3. METFORMIN [Concomitant]
     Active Substance: METFORMIN HYDROCHLORIDE
     Dosage: 1000 MILLIGRAM
  4. JANUVIA [Concomitant]
     Active Substance: SITAGLIPTIN PHOSPHATE
     Dosage: 50 MILLIGRAM
  5. ANDROGEL [Concomitant]
     Active Substance: TESTOSTERONE
     Dosage: 25 MILLIGRAM (1 %)
  6. JANUMET [Concomitant]
     Active Substance: METFORMIN HYDROCHLORIDE\SITAGLIPTIN PHOSPHATE
     Dosage: 50-1000
  7. TRELSTAR [Concomitant]
     Active Substance: TRIPTORELIN PAMOATE
     Dosage: 11.25 MILLIGRAM

REACTIONS (1)
  - Death [Fatal]
